FAERS Safety Report 25537598 (Version 1)
Quarter: 2025Q3

REPORT INFORMATION
  Report Type: Report from Study
  Country: AR (occurrence: AR)
  Receive Date: 20250710
  Receipt Date: 20250710
  Transmission Date: 20251020
  Serious: Yes (Hospitalization)
  Sender: NOVARTIS
  Company Number: AR-002147023-NVSC2025AR084008

PATIENT
  Sex: Female

DRUGS (6)
  1. KISQALI [Suspect]
     Active Substance: RIBOCICLIB SUCCINATE
     Indication: Breast cancer metastatic
     Dosage: 200 MG, TID (IN THE MORNING, AFTERNOON AND NIGHT)
     Route: 048
     Dates: start: 20250405
  2. LETROZOLE [Suspect]
     Active Substance: LETROZOLE
     Indication: Product used for unknown indication
     Route: 065
  3. MORPHINE [Concomitant]
     Active Substance: MORPHINE
     Indication: Osteoarthritis
     Dosage: UNK, Q6H (INJECTION)
     Route: 058
  4. PREGABALIN [Concomitant]
     Active Substance: PREGABALIN
     Indication: Osteoarthritis
     Dosage: UNK, TID (1 IN MORNING AND TWO AT NIGHT)
     Route: 065
  5. ENALAPRIL [Concomitant]
     Active Substance: ENALAPRIL
     Indication: Blood pressure abnormal
     Dosage: 10 MG, BID (1 IN MORNING AND 1 AT NIGHT) (MORE THAN 5 YEARS AGO)
     Route: 065
  6. LEVOTHYROXINE [Concomitant]
     Active Substance: LEVOTHYROXINE
     Indication: Thyroid disorder
     Route: 065
     Dates: start: 2021

REACTIONS (6)
  - Vomiting [Unknown]
  - Influenza [Unknown]
  - Illness [Unknown]
  - Gastroenteritis [Unknown]
  - Inflammation [Unknown]
  - Inappropriate schedule of product administration [Unknown]
